FAERS Safety Report 7717411-9 (Version None)
Quarter: 2011Q3

REPORT INFORMATION
  Report Type: 
  Country: None (occurrence: None)
  Receive Date: 20110824
  Receipt Date: 20110811
  Transmission Date: 20111222
  Serious: Yes (Other)
  Sender: FDA-Public Use
  Company Number: 2011AP001755

PATIENT
  Age: 43 Year
  Sex: Male

DRUGS (8)
  1. AMLODIPINE BESYLATE [Concomitant]
  2. ,, [Concomitant]
  3. LORATADINE [Concomitant]
  4. TRAMADOL HYDROCHLORIDE [Suspect]
     Dosage: 1 TAB; BID; PO
     Route: 048
     Dates: start: 20101208
  5. MELOXICAM [Concomitant]
  6. OMEPRAZOLE [Concomitant]
  7. DOXAZOSIN MESILATE [Concomitant]
  8. PRAVASTATIN [Concomitant]

REACTIONS (6)
  - DYSPHONIA [None]
  - DIARRHOEA [None]
  - DRUG HYPERSENSITIVITY [None]
  - NAUSEA [None]
  - PRURITUS GENERALISED [None]
  - VOMITING [None]
